FAERS Safety Report 7327886-5 (Version None)
Quarter: 2011Q1

REPORT INFORMATION
  Report Type: 
  Country: None (occurrence: None)
  Receive Date: 20110303
  Receipt Date: 20110221
  Transmission Date: 20110831
  Serious: Yes (Other)
  Sender: FDA-Public Use
  Company Number: GB-JNJFOC-20101001836

PATIENT
  Age: 84 Year
  Sex: Female
  Weight: 60 kg

DRUGS (2)
  1. REMICADE [Suspect]
     Indication: RHEUMATOID ARTHRITIS
     Route: 042
  2. METHOTREXATE [Concomitant]

REACTIONS (5)
  - LYMPH NODE CANCER METASTATIC [None]
  - EPSTEIN-BARR VIRUS INFECTION [None]
  - DEEP VEIN THROMBOSIS [None]
  - DIFFUSE LARGE B-CELL LYMPHOMA [None]
  - PERICARDIAL EFFUSION [None]
